FAERS Safety Report 25137126 (Version 2)
Quarter: 2025Q1

REPORT INFORMATION
  Report Type: Report from Study
  Country: US (occurrence: US)
  Receive Date: 20250328
  Receipt Date: 20250331
  Transmission Date: 20250408
  Serious: Yes (Death)
  Sender: ROCHE
  Company Number: US-ROCHE-10000243666

PATIENT
  Age: 57 Year
  Sex: Female
  Weight: 36.5 kg

DRUGS (2)
  1. AVASTIN [Suspect]
     Active Substance: BEVACIZUMAB
     Indication: Colorectal cancer metastatic
     Route: 065
  2. LONSURF [Concomitant]
     Active Substance: TIPIRACIL HYDROCHLORIDE\TRIFLURIDINE
     Dosage: TAKE 2 TABS MORNING AND NIGHT DAYS 1-5 DAYS 8-12 OF EACH 28 DAY CYCLE
     Route: 048

REACTIONS (1)
  - Death [Fatal]
